FAERS Safety Report 9516311 (Version 1)
Quarter: 2013Q3

REPORT INFORMATION
  Report Type: Spontaneous
  Country: US (occurrence: US)
  Receive Date: 20130911
  Receipt Date: 20130911
  Transmission Date: 20140515
  Serious: No
  Sender: FDA-Public Use
  Company Number: US-TEVA-431402USA

PATIENT
  Sex: Male

DRUGS (2)
  1. QNASL [Suspect]
     Route: 045
  2. CLARITIN [Suspect]

REACTIONS (1)
  - Dysgeusia [Unknown]
